FAERS Safety Report 5506888-5 (Version None)
Quarter: 2007Q4

REPORT INFORMATION
  Report Type: 
  Country: None (occurrence: None)
  Receive Date: 20071105
  Receipt Date: 20071024
  Transmission Date: 20080405
  Serious: Yes (Other)
  Sender: FDA-Public Use
  Company Number: US-PFIZER INC-2007091048

PATIENT
  Sex: Female
  Weight: 60.909 kg

DRUGS (4)
  1. CHANTIX [Suspect]
     Indication: SMOKING CESSATION THERAPY
     Dates: start: 20070101, end: 20071019
  2. LEXAPRO [Concomitant]
     Indication: STOMACH DISCOMFORT
  3. FEMHRT [Concomitant]
     Indication: MENOPAUSE
     Dosage: TEXT:0.5 MG/2.5 MG-FREQ:DAILY
  4. DIOVAN [Concomitant]
     Dosage: DAILY DOSE:160MG-FREQ:DAILY

REACTIONS (6)
  - ACTIVITIES OF DAILY LIVING IMPAIRED [None]
  - BLOOD URINE PRESENT [None]
  - FOOD CRAVING [None]
  - INSOMNIA [None]
  - POLLAKIURIA [None]
  - URINE ODOUR ABNORMAL [None]
